FAERS Safety Report 7582855-5 (Version None)
Quarter: 2011Q2

REPORT INFORMATION
  Report Type: 
  Country: None (occurrence: None)
  Receive Date: 20110630
  Receipt Date: 20110624
  Transmission Date: 20111010
  Serious: Yes (Other)
  Sender: FDA-Public Use
  Company Number: US-JNJFOC-20110611596

PATIENT
  Sex: Female
  Weight: 88.45 kg

DRUGS (3)
  1. LEVAQUIN [Suspect]
     Indication: EAR INFECTION
     Route: 048
     Dates: start: 20110215, end: 20110219
  2. HYDROCHLOROTHIAZIDE [Concomitant]
     Indication: HYPERTENSION
     Route: 048
  3. LEVAQUIN [Suspect]
     Indication: BRONCHITIS
     Route: 048
     Dates: start: 20110215, end: 20110219

REACTIONS (6)
  - LIGAMENT INJURY [None]
  - ARTHRALGIA [None]
  - PAIN IN EXTREMITY [None]
  - MENISCUS LESION [None]
  - TENDON PAIN [None]
  - TENDONITIS [None]
